FAERS Safety Report 7509768-9 (Version None)
Quarter: 2011Q2

REPORT INFORMATION
  Report Type: 
  Country: None (occurrence: None)
  Receive Date: 20110519
  Receipt Date: 20110505
  Transmission Date: 20111010
  Serious: Yes (Death, Hospitalization, Disabling, Other)
  Sender: FDA-Public Use
  Company Number: 2011MA005444

PATIENT
  Age: 50 Year
  Sex: Male

DRUGS (1)
  1. PHENYTOIN ORAL SUSPENSION USP, 125 MG/5 ML (ALPHARM) (PHENYTOIN) [Suspect]
     Dosage: 100 MG; TID

REACTIONS (16)
  - DECREASED APPETITE [None]
  - GENERAL PHYSICAL HEALTH DETERIORATION [None]
  - DIZZINESS [None]
  - HEADACHE [None]
  - DISORIENTATION [None]
  - VOMITING [None]
  - DYSARTHRIA [None]
  - CONTUSION [None]
  - URINARY INCONTINENCE [None]
  - INCORRECT DOSE ADMINISTERED [None]
  - CONFUSIONAL STATE [None]
  - FALL [None]
  - TOXICITY TO VARIOUS AGENTS [None]
  - LACERATION [None]
  - CONSTIPATION [None]
  - NYSTAGMUS [None]
